FAERS Safety Report 7724721-8 (Version None)
Quarter: 2011Q3

REPORT INFORMATION
  Report Type: 
  Country: None (occurrence: None)
  Receive Date: 20110901
  Receipt Date: 20101015
  Transmission Date: 20111222
  Serious: Yes (Other)
  Sender: FDA-Public Use
  Company Number: US-BAYER-201021951BCC

PATIENT
  Age: 69 Year
  Sex: Female
  Weight: 90 kg

DRUGS (3)
  1. ALKA-SELTZER [ACETYLSALICYLIC ACID,CITRIC ACID,SODIUM BICARBONATE] [Suspect]
     Indication: ISCHAEMIC HEART DISEASE PROPHYLAXIS
  2. ATIVAN [Concomitant]
  3. TENORMIN [Concomitant]

REACTIONS (1)
  - ATRIAL FIBRILLATION [None]
